FAERS Safety Report 21810141 (Version 1)
Quarter: 2023Q1

REPORT INFORMATION
  Report Type: Report from Study
  Country: CA (occurrence: CA)
  Receive Date: 20230103
  Receipt Date: 20230103
  Transmission Date: 20230417
  Serious: Yes (Other)
  Sender: FDA-Public Use
  Company Number: CA-CELLTRION INC.-2022CA021866

PATIENT

DRUGS (1)
  1. TRUXIMA [Suspect]
     Active Substance: RITUXIMAB-ABBS
     Indication: Autoimmune haemolytic anaemia
     Dosage: 375 MILLIGRAM/SQ. METER ONCE WEEKLY FOR 4 WEEKS
     Route: 042

REACTIONS (2)
  - Autoimmune haemolytic anaemia [Unknown]
  - Off label use [Unknown]
